FAERS Safety Report 17010615 (Version 1)
Quarter: 2019Q4

REPORT INFORMATION
  Report Type: Spontaneous
  Country: CZ (occurrence: CZ)
  Receive Date: 20191108
  Receipt Date: 20191108
  Transmission Date: 20200122
  Serious: Yes (Other)
  Sender: FDA-Public Use
  Company Number: CZ-GEHC-2019CSU005713

PATIENT

DRUGS (12)
  1. MAGNEVIST [Suspect]
     Active Substance: GADOPENTETATE DIMEGLUMINE
     Indication: MAGNETIC RESONANCE IMAGING
     Dosage: 90 ML TOTAL FOR 9 EXAMINATIONS
     Route: 065
  2. MULTIHANCE [Suspect]
     Active Substance: GADOBENATE DIMEGLUMINE
     Indication: GLIOBLASTOMA MULTIFORME
  3. PROHANCE [Suspect]
     Active Substance: GADOTERIDOL
     Indication: MAGNETIC RESONANCE IMAGING
     Dosage: 9 ML, SINGLE
     Route: 065
  4. DOTAREM [Suspect]
     Active Substance: GADOTERATE MEGLUMINE
     Indication: GLIOBLASTOMA MULTIFORME
  5. OMNISCAN [Suspect]
     Active Substance: GADODIAMIDE
     Indication: GLIOBLASTOMA MULTIFORME
  6. GADOVIST [Suspect]
     Active Substance: GADOBUTROL
     Indication: MAGNETIC RESONANCE IMAGING
     Dosage: 172 ML TOTAL FOR 11 EXAMINATIONS
     Route: 065
  7. DOTAREM [Suspect]
     Active Substance: GADOTERATE MEGLUMINE
     Indication: MAGNETIC RESONANCE IMAGING
     Dosage: 96 ML TOTAL FOR 5 EXAMINATIONS
     Route: 065
  8. MULTIHANCE [Suspect]
     Active Substance: GADOBENATE DIMEGLUMINE
     Indication: MAGNETIC RESONANCE IMAGING
     Dosage: 279 ML TOTAL FOR 24 EXAMINATIONS
     Route: 065
  9. MAGNEVIST [Suspect]
     Active Substance: GADOPENTETATE DIMEGLUMINE
     Indication: GLIOBLASTOMA MULTIFORME
  10. OMNISCAN [Suspect]
     Active Substance: GADODIAMIDE
     Indication: MAGNETIC RESONANCE IMAGING
     Dosage: 90 ML TOTAL FOR 9 EXAMINATIONS
     Route: 065
  11. GADOVIST [Suspect]
     Active Substance: GADOBUTROL
     Indication: GLIOBLASTOMA MULTIFORME
  12. PROHANCE [Suspect]
     Active Substance: GADOTERIDOL
     Indication: GLIOBLASTOMA MULTIFORME

REACTIONS (2)
  - No adverse event [Recovered/Resolved]
  - Magnetic resonance imaging brain abnormal [Recovered/Resolved]
